FAERS Safety Report 13045227 (Version 1)
Quarter: 2016Q4

REPORT INFORMATION
  Report Type: Other
  Country: CA (occurrence: CA)
  Receive Date: 20161220
  Receipt Date: 20161220
  Transmission Date: 20170207
  Serious: Yes (Disabling)
  Sender: FDA-Public Use
  Company Number: CA-TARO PHARMACEUTICALS USA.,INC-2016SUN00525

PATIENT
  Age: 80 Year
  Sex: Female
  Weight: 78 kg

DRUGS (1)
  1. TARO-MOMETASONE CREAM 0.1% [Suspect]
     Active Substance: MOMETASONE
     Indication: ROSACEA
     Dosage: UNK, QD
     Route: 065

REACTIONS (2)
  - Rash papular [Recovered/Resolved]
  - Pruritus [Recovered/Resolved]
